FAERS Safety Report 13758958 (Version 1)
Quarter: 2017Q3

REPORT INFORMATION
  Report Type: Report from Study
  Country: None (occurrence: US)
  Receive Date: 20170717
  Receipt Date: 20170717
  Transmission Date: 20171127
  Serious: Yes (Hospitalization, Other)
  Sender: FDA-Public Use
  Company Number: US-ABBVIE-17K-163-1903521-00

PATIENT
  Age: 62 Year
  Sex: Female

DRUGS (1)
  1. HUMIRA [Suspect]
     Active Substance: ADALIMUMAB
     Indication: CROHN^S DISEASE
     Route: 058
     Dates: start: 20170208

REACTIONS (8)
  - Peripheral swelling [Recovered/Resolved]
  - Gastrointestinal oedema [Unknown]
  - Joint effusion [Recovered/Resolved]
  - Eye infection bacterial [Recovered/Resolved]
  - Rash papular [Not Recovered/Not Resolved]
  - Weight increased [Not Recovered/Not Resolved]
  - Urinary tract infection [Recovered/Resolved]
  - Ankle fracture [Not Recovered/Not Resolved]

NARRATIVE: CASE EVENT DATE: 2017
